FAERS Safety Report 7372010-6 (Version None)
Quarter: 2011Q1

REPORT INFORMATION
  Report Type: 
  Country: None (occurrence: None)
  Receive Date: 20110314
  Receipt Date: 20110302
  Transmission Date: 20110831
  Serious: Yes (Hospitalization)
  Sender: FDA-Public Use
  Company Number: 028518

PATIENT
  Sex: Male
  Weight: 62 kg

DRUGS (4)
  1. ENTOCORT EC [Concomitant]
  2. AZATHIOPRINE [Concomitant]
  3. CIMZIA [Suspect]
     Indication: CROHN'S DISEASE
     Dosage: (SUBCUTANEOUS)
     Route: 058
     Dates: start: 20110215
  4. ERYTHROMYCIN [Concomitant]

REACTIONS (1)
  - SEPSIS [None]
